FAERS Safety Report 9547945 (Version 3)
Quarter: 2014Q1

REPORT INFORMATION
  Report Type: Report from Study
  Country: US (occurrence: CA)
  Receive Date: 20130924
  Receipt Date: 20140210
  Transmission Date: 20141002
  Serious: Yes (Life-Threatening, Hospitalization)
  Sender: FDA-Public Use
  Company Number: US-CELGENEUS-028-C5013-13081907

PATIENT
  Age: 76 Year
  Sex: Female
  Weight: 56.5 kg

DRUGS (14)
  1. CC-5013 [Suspect]
     Indication: PLASMA CELL MYELOMA
     Dosage: 25 MILLIGRAM
     Route: 048
     Dates: start: 20100811
  2. CC-5013 [Suspect]
     Dosage: 15 MILLIGRAM
     Route: 048
     Dates: start: 20130821, end: 20130827
  3. DEXAMETHASONE [Suspect]
     Indication: PLASMA CELL MYELOMA
     Dosage: 40 MILLIGRAM
     Route: 065
     Dates: start: 20100811
  4. DEXAMETHASONE [Suspect]
     Dosage: 40 MILLIGRAM
     Route: 065
     Dates: start: 20130821, end: 20130827
  5. WARFARIN [Concomitant]
     Indication: THROMBOSIS PROPHYLAXIS
     Dosage: 2.5 MILLIGRAM
     Route: 048
     Dates: start: 20110509
  6. DILTIAZEM HCL [Concomitant]
     Indication: HYPERTENSION
     Dosage: 180 MILLIGRAM
     Route: 048
     Dates: start: 1996
  7. CALCIUM CARBONATE [Concomitant]
     Indication: MINERAL SUPPLEMENTATION
     Dosage: 1250 MILLIGRAM
     Route: 048
     Dates: start: 20111120
  8. PAMIDRONATE [Concomitant]
     Indication: HYPERCALCAEMIA
     Dosage: 90 MILLIGRAM
     Route: 041
     Dates: start: 20100719
  9. LASIX [Concomitant]
     Indication: LOCAL SWELLING
     Route: 048
     Dates: start: 20120327
  10. LASIX [Concomitant]
     Indication: OEDEMA PERIPHERAL
  11. POTASSIUM CITRATE [Concomitant]
     Indication: ELECTROLYTE SUBSTITUTION THERAPY
     Dosage: 99 MILLIGRAM
     Route: 048
     Dates: start: 20120229
  12. VITAMIN D [Concomitant]
     Indication: VITAMIN SUPPLEMENTATION
     Dosage: 1000 IU (INTERNATIONAL UNIT)
     Route: 048
     Dates: start: 20101020
  13. LOMOTIL [Concomitant]
     Indication: DIARRHOEA
     Route: 065
     Dates: start: 20120603
  14. HYDROMORPHINE [Concomitant]
     Indication: PAIN
     Route: 048
     Dates: start: 201008

REACTIONS (3)
  - Convulsion [Recovered/Resolved]
  - Convulsion [Recovered/Resolved]
  - Pneumonia aspiration [Recovered/Resolved]
